FAERS Safety Report 18959224 (Version 6)
Quarter: 2021Q3

REPORT INFORMATION
  Report Type: Spontaneous
  Country: US (occurrence: US)
  Receive Date: 20210302
  Receipt Date: 20210907
  Transmission Date: 20211014
  Serious: Yes (Other)
  Sender: FDA-Public Use
  Company Number: US-SA-2021SA065256

PATIENT
  Age: 72 Year
  Sex: Male

DRUGS (7)
  1. IMURAN [Suspect]
     Active Substance: AZATHIOPRINE
     Indication: CROHN^S DISEASE
     Dosage: UNK
     Route: 065
  2. APIDRA [Suspect]
     Active Substance: INSULIN GLULISINE
     Dosage: TODAY HE TOOK 9 UNITS THIS MORNING, THEN 11 UNITS, THEN 2 AT LUNCH TIME, AND WAS GOING TO TAKE ABOUT
     Route: 065
     Dates: start: 20210709
  3. TOUJEO [Suspect]
     Active Substance: INSULIN GLARGINE
     Dosage: UNK
     Route: 065
  4. TOUJEO [Suspect]
     Active Substance: INSULIN GLARGINE
  5. APIDRA [Suspect]
     Active Substance: INSULIN GLULISINE
     Indication: DIABETES MELLITUS
     Dosage: 20 IU, TID
     Route: 065
  6. TRESIBA [Suspect]
     Active Substance: INSULIN DEGLUDEC
     Dosage: UNK
     Route: 065
  7. TRESIBA [Suspect]
     Active Substance: INSULIN DEGLUDEC

REACTIONS (8)
  - Illness [Unknown]
  - Pancreatic failure [Unknown]
  - Pancreatitis [Unknown]
  - Blood insulin decreased [Unknown]
  - Tinnitus [Unknown]
  - Blood glucose abnormal [Unknown]
  - Adverse drug reaction [Unknown]
  - Drug ineffective [Unknown]
